FAERS Safety Report 4571112-7 (Version None)
Quarter: 2005Q1

REPORT INFORMATION
  Report Type: 
  Country: None (occurrence: None)
  Receive Date: 20050202
  Receipt Date: 20050113
  Transmission Date: 20050727
  Serious: Yes (Death)
  Sender: FDA-Public Use
  Company Number: EWC050142292

PATIENT
  Age: 44 Year
  Sex: Female
  Weight: 60 kg

DRUGS (1)
  1. XIGRIS [Suspect]
     Indication: ABDOMINAL SEPSIS
     Dates: start: 20050105, end: 20050109

REACTIONS (3)
  - HAEMODYNAMIC INSTABILITY [None]
  - HAEMORRHAGE INTRACRANIAL [None]
  - SUBARACHNOID HAEMORRHAGE [None]
